FAERS Safety Report 13470458 (Version 2)
Quarter: 2017Q3

REPORT INFORMATION
  Report Type: Report from Study
  Country: None (occurrence: BR)
  Receive Date: 20170424
  Receipt Date: 20170824
  Transmission Date: 20171127
  Serious: Yes (Hospitalization, Other)
  Sender: FDA-Public Use
  Company Number: BR-ABBVIE-17K-020-1951598-00

PATIENT
  Age: 51 Year
  Sex: Female
  Weight: 87 kg

DRUGS (2)
  1. ARCOXIA [Concomitant]
     Active Substance: ETORICOXIB
     Indication: PAIN
  2. HUMIRA [Suspect]
     Active Substance: ADALIMUMAB
     Indication: ANKYLOSING SPONDYLITIS
     Route: 058
     Dates: start: 20161111

REACTIONS (13)
  - Dyspnoea [Recovering/Resolving]
  - Thymus disorder [Recovering/Resolving]
  - Procedural pain [Recovering/Resolving]
  - Nausea [Recovered/Resolved]
  - Pneumonia [Recovering/Resolving]
  - Malaise [Unknown]
  - Arthralgia [Not Recovered/Not Resolved]
  - Headache [Recovered/Resolved]
  - Diaphragmatic disorder [Recovering/Resolving]
  - Mediastinal mass [Not Recovered/Not Resolved]
  - Injection site erythema [Unknown]
  - Irritability [Recovering/Resolving]
  - Drug effect incomplete [Recovering/Resolving]

NARRATIVE: CASE EVENT DATE: 20161111
